FAERS Safety Report 8081352-0 (Version None)
Quarter: 2012Q1

REPORT INFORMATION
  Report Type: 
  Country: None (occurrence: None)
  Receive Date: 20120130
  Receipt Date: 20120126
  Transmission Date: 20120608
  Serious: Yes (Other)
  Sender: FDA-Public Use
  Company Number: CA-ABBOTT-12P-028-0898771-00

PATIENT
  Age: 34 Year
  Sex: Female

DRUGS (4)
  1. TENOFOVIR DISOPROSIL FUMARATE (VIREAD) [Concomitant]
     Indication: PRODUCT USED FOR UNKNOWN INDICATION
  2. TRUVADA [Concomitant]
     Indication: PRODUCT USED FOR UNKNOWN INDICATION
  3. KALETRA [Suspect]
     Indication: PRODUCT USED FOR UNKNOWN INDICATION
  4. SYMBICORT [Concomitant]
     Indication: PRODUCT USED FOR UNKNOWN INDICATION

REACTIONS (4)
  - ADRENAL SUPPRESSION [None]
  - DRUG INTERACTION [None]
  - ADDISON'S DISEASE [None]
  - CUSHING'S SYNDROME [None]
